FAERS Safety Report 5557904-6 (Version None)
Quarter: 2007Q4

REPORT INFORMATION
  Report Type: 
  Country: None (occurrence: None)
  Receive Date: 20071214
  Receipt Date: 20071204
  Transmission Date: 20080405
  Serious: Yes (Death)
  Sender: FDA-Public Use
  Company Number: US-ELI_LILLY_AND_COMPANY-US200712001005

PATIENT
  Age: 55 Year
  Sex: Female

DRUGS (1)
  1. XIGRIS [Suspect]
     Dosage: UNK, OTHER
     Dates: start: 20071101, end: 20071101

REACTIONS (1)
  - DEATH [None]
